FAERS Safety Report 5151474-2 (Version None)
Quarter: 2006Q4

REPORT INFORMATION
  Report Type: 
  Country: None (occurrence: None)
  Receive Date: 20061115
  Receipt Date: 20061009
  Transmission Date: 20070319
  Serious: Yes (Other)
  Sender: FDA-Public Use
  Company Number: GB-SANOFI-SYNTHELABO-A01200608621

PATIENT
  Sex: Female

DRUGS (7)
  1. LANTUS [Concomitant]
     Dosage: UNK
  2. NOVORAPID INSULIN [Concomitant]
     Dosage: UNK
  3. COD LIVER OIL [Concomitant]
     Dosage: UNK
  4. CALCICHEW D3 [Concomitant]
     Dosage: 2 TABLEST
     Route: 048
  5. DICLOFANEC [Concomitant]
     Dosage: 100 MG
  6. METHOTREXATE [Concomitant]
     Indication: RHEUMATOID ARTHRITIS
     Dosage: 15 MG
     Route: 048
  7. PLAQUENIL [Suspect]
     Indication: RHEUMATOID ARTHRITIS
     Dosage: 100 MG BY MOUTH
     Route: 048
     Dates: start: 20060928, end: 20061006

REACTIONS (1)
  - HYPOGLYCAEMIA [None]
